APPROVED DRUG PRODUCT: IBUPROFEN
Active Ingredient: IBUPROFEN
Strength: 200MG
Dosage Form/Route: TABLET;ORAL
Application: A079174 | Product #001
Applicant: GRANULES INDIA LTD
Approved: Dec 10, 2010 | RLD: No | RS: No | Type: OTC